FAERS Safety Report 9643922 (Version 1)
Quarter: 2013Q4

REPORT INFORMATION
  Report Type: Spontaneous
  Country: TR (occurrence: None)
  Receive Date: 20131023
  Receipt Date: 20131023
  Transmission Date: 20140711
  Serious: Yes (Other)
  Sender: FDA-Public Use
  Company Number: CO-OR-TR-2013-149

PATIENT
  Age: 6 Year
  Sex: Male

DRUGS (1)
  1. PREDNISOLONE [Suspect]
     Indication: ACUTE DISSEMINATED ENCEPHALOMYELITIS
     Route: 048

REACTIONS (4)
  - Ataxia [None]
  - Dysarthria [None]
  - Hyperreflexia [None]
  - Epilepsy [None]
